FAERS Safety Report 5290978-9 (Version None)
Quarter: 2007Q2

REPORT INFORMATION
  Report Type: 
  Country: None (occurrence: None)
  Receive Date: 20070409
  Receipt Date: 20070329
  Transmission Date: 20071010
  Serious: Yes (Death)
  Sender: FDA-Public Use
  Company Number: JP-ROCHE-491629

PATIENT
  Age: 59 Year
  Sex: Male

DRUGS (8)
  1. TAMIFLU [Suspect]
     Indication: INFLUENZA
     Route: 048
     Dates: start: 20070325, end: 20070325
  2. UNASYN [Concomitant]
     Route: 048
     Dates: start: 20070325, end: 20070325
  3. CERCINE [Concomitant]
     Route: 048
     Dates: start: 20070325, end: 20070325
  4. HIBERNA [Concomitant]
     Route: 048
     Dates: start: 20070325, end: 20070325
  5. TAGAMET [Concomitant]
     Route: 048
     Dates: start: 20070325, end: 20070325
  6. URSO [Concomitant]
     Route: 048
     Dates: start: 20070325, end: 20070325
  7. ZYPREXA [Concomitant]
     Route: 048
     Dates: start: 20070325, end: 20070325
  8. PA [Concomitant]
     Route: 048
     Dates: start: 20070325, end: 20070325

REACTIONS (1)
  - CARDIO-RESPIRATORY ARREST [None]
